FAERS Safety Report 8853432 (Version 1)
Quarter: 2012Q4

REPORT INFORMATION
  Report Type: 
  Country: US (occurrence: US)
  Receive Date: 20121022
  Receipt Date: 20121022
  Transmission Date: 20130627
  Serious: Yes (Death, Hospitalization)
  Sender: FDA-Public Use
  Company Number: US-GLAXOSMITHKLINE-A0997679A

PATIENT
  Age: 75 Year
  Sex: Female

DRUGS (7)
  1. ADVAIR [Suspect]
     Indication: CHRONIC OBSTRUCTIVE PULMONARY DISEASE
     Dosage: 1PUFF Twice per day
     Route: 055
  2. SPIRIVA [Concomitant]
  3. LISINOPRIL [Concomitant]
  4. DIGOXIN [Concomitant]
  5. ALBUTEROL NEBULIZER [Concomitant]
  6. CLONIDINE [Concomitant]
  7. CONCURRENT MEDICATIONS [Concomitant]

REACTIONS (4)
  - Thrombosis [Fatal]
  - Hip fracture [Unknown]
  - Hip fracture [Unknown]
  - Fall [Unknown]
